FAERS Safety Report 19749256 (Version 1)
Quarter: 2021Q3

REPORT INFORMATION
  Report Type: Spontaneous
  Country: US (occurrence: US)
  Receive Date: 20210825
  Receipt Date: 20210825
  Transmission Date: 20211014
  Serious: No
  Sender: FDA-Public Use
  Company Number: None

PATIENT
  Age: 30 Year
  Sex: Female
  Weight: 54 kg

DRUGS (12)
  1. PREDNISONE. [Concomitant]
     Active Substance: PREDNISONE
  2. PROCYSBI [Concomitant]
     Active Substance: CYSTEAMINE BITARTRATE
  3. TACROLIMUS. [Concomitant]
     Active Substance: TACROLIMUS
  4. ZOFRAN [Concomitant]
     Active Substance: ONDANSETRON HYDROCHLORIDE
  5. CARVADILOL [Concomitant]
  6. COLLAGEN [Concomitant]
     Active Substance: COLLAGEN
  7. AMLODIPINE [Concomitant]
     Active Substance: AMLODIPINE BESYLATE
  8. MYCOPHENELATE [Concomitant]
  9. CYSTADROPS [Suspect]
     Active Substance: CYSTEAMINE HYDROCHLORIDE
     Indication: CYSTINOSIS
     Dosage: ?          QUANTITY:1 DROP(S);?
     Route: 047
     Dates: end: 20210825
  10. BIOTIN [Concomitant]
     Active Substance: BIOTIN
  11. RENAL VITAMIN [Concomitant]
  12. FIBER [Concomitant]
     Active Substance: PSYLLIUM HUSK

REACTIONS (2)
  - Visual impairment [None]
  - Eye pain [None]
